FAERS Safety Report 9376342 (Version 1)
Quarter: 2013Q3

REPORT INFORMATION
  Report Type: Spontaneous
  Country: US (occurrence: US)
  Receive Date: 20130701
  Receipt Date: 20130701
  Transmission Date: 20140515
  Serious: No
  Sender: FDA-Public Use
  Company Number: US-ASTRAZENECA-2013SE41605

PATIENT
  Age: 41 Year
  Sex: Female
  Weight: 93 kg

DRUGS (2)
  1. NEXIUM [Suspect]
     Indication: GASTROOESOPHAGEAL REFLUX DISEASE
     Route: 048
  2. HCTZ [Concomitant]
     Indication: BLOOD PRESSURE
     Dates: start: 2008

REACTIONS (5)
  - Burning sensation [Recovering/Resolving]
  - Sluggishness [Recovering/Resolving]
  - Discomfort [Recovering/Resolving]
  - Malaise [Recovering/Resolving]
  - Drug dose omission [Unknown]
